FAERS Safety Report 4496275-3 (Version None)
Quarter: 2004Q3

REPORT INFORMATION
  Report Type: 
  Country: None (occurrence: None)
  Receive Date: 20040921
  Receipt Date: 20040324
  Transmission Date: 20050211
  Serious: Yes (Hospitalization)
  Sender: FDA-Public Use
  Company Number: 163-20785-04030697

PATIENT
  Age: 72 Year
  Sex: Female
  Weight: 45.8 kg

DRUGS (3)
  1. THALOMID [Suspect]
     Indication: MULTIPLE MYELOMA
     Dosage: 50 MG, QHS, ORAL; SEE IMAGE
     Route: 048
     Dates: start: 20030502, end: 20040322
  2. THALOMID [Suspect]
     Indication: MULTIPLE MYELOMA
     Dosage: 50 MG, QHS, ORAL; SEE IMAGE
     Route: 048
     Dates: start: 20010810
  3. PS-341 (50 MILLIGRAM, UNKNOWN) [Suspect]
     Indication: MULTIPLE MYELOMA
     Dosage: 1.3 MG/M2, DAILY ON DAYS 1, 4, 8, 11 EVERY 28 DAYS, INTRAVENOUS
     Route: 042
     Dates: start: 20030411, end: 20040319

REACTIONS (4)
  - BRADYCARDIA [None]
  - HYPOTENSION [None]
  - HYPOXIA [None]
  - PNEUMONIA [None]
